FAERS Safety Report 11499501 (Version 2)
Quarter: 2015Q3

REPORT INFORMATION
  Report Type: Spontaneous
  Country: FR (occurrence: FR)
  Receive Date: 20150914
  Receipt Date: 20150918
  Transmission Date: 20151125
  Serious: Yes (Disabling)
  Sender: FDA-Public Use
  Company Number: FR-ORION CORPORATION ORION PHARMA-TREX2015-0547

PATIENT
  Age: 66 Year
  Sex: Female

DRUGS (6)
  1. CALCIDOSE [Concomitant]
     Active Substance: CALCIUM CARBONATE
     Route: 065
  2. OPTRUMA [Concomitant]
     Active Substance: RALOXIFENE HYDROCHLORIDE
     Route: 065
  3. PANTOPRAZOLE [Concomitant]
     Active Substance: PANTOPRAZOLE SODIUM
     Route: 065
  4. METHOTREXATE (METHOTREXATE SODIUM) [Suspect]
     Active Substance: METHOTREXATE SODIUM
     Indication: RHEUMATOID ARTHRITIS
     Dosage: STRENGTH: 2.5 MG
     Route: 065
  5. PHOSPHALUGEL [Concomitant]
     Active Substance: ALUMINUM PHOSPHATE
     Route: 065
  6. FOLIC ACID. [Concomitant]
     Active Substance: FOLIC ACID
     Route: 065

REACTIONS (6)
  - Product quality issue [Unknown]
  - Activities of daily living impaired [Unknown]
  - Drug dispensing error [Unknown]
  - Expired product administered [Unknown]
  - Arthralgia [Unknown]
  - Drug ineffective [Unknown]
